FAERS Safety Report 12185453 (Version 5)
Quarter: 2016Q4

REPORT INFORMATION
  Report Type: Report from Study
  Country: JP (occurrence: JP)
  Receive Date: 20160316
  Receipt Date: 20161226
  Transmission Date: 20170207
  Serious: Yes (Hospitalization, Other)
  Sender: FDA-Public Use
  Company Number: PHJP2015JP018179

PATIENT
  Age: 75 Year
  Sex: Male
  Weight: 33 kg

DRUGS (14)
  1. LENDORMIN [Concomitant]
     Active Substance: BROTIZOLAM
     Indication: PRODUCT USED FOR UNKNOWN INDICATION
     Dosage: 0.25 MG, UNK
     Route: 048
  2. FERROMIA [Concomitant]
     Active Substance: FERROUS CITRATE
     Indication: PANCREATIC NEUROENDOCRINE TUMOUR
     Dosage: 50 MG, UNK
     Route: 048
     Dates: start: 20121016, end: 20121112
  3. MAGLAX [Concomitant]
     Active Substance: MAGNESIUM OXIDE
     Indication: PANCREATIC NEUROENDOCRINE TUMOUR
     Dosage: 1500 MG, UNK
     Route: 048
  4. DUROTEP [Concomitant]
     Active Substance: FENTANYL
     Indication: PANCREATIC NEUROENDOCRINE TUMOUR
     Dosage: 4.2 MG, UNK
     Route: 061
  5. MYONAL [Concomitant]
     Active Substance: EPERISONE HYDROCHLORIDE
     Indication: PANCREATIC NEUROENDOCRINE TUMOUR
     Dosage: 150 MG, UNK
     Route: 048
  6. TAKEPRON [Concomitant]
     Active Substance: LANSOPRAZOLE
     Indication: PANCREATIC NEUROENDOCRINE TUMOUR
     Dosage: 15 MG, UNK
     Route: 048
  7. TRAMAL [Concomitant]
     Active Substance: TRAMADOL
     Indication: PANCREATIC NEUROENDOCRINE TUMOUR
     Dosage: 75 MG, UNK
     Route: 048
     Dates: start: 20130315
  8. AFINITOR [Suspect]
     Active Substance: EVEROLIMUS
     Dosage: 10 MG, QD
     Route: 048
     Dates: start: 20130723, end: 20130903
  9. CELECOX [Concomitant]
     Active Substance: CELECOXIB
     Indication: PANCREATIC NEUROENDOCRINE TUMOUR
     Dosage: 400 MG, UNK
     Route: 048
  10. DUROTEP [Concomitant]
     Active Substance: FENTANYL
     Dosage: 6.3 MG, UNK
     Route: 061
  11. TRAMAL [Concomitant]
     Active Substance: TRAMADOL
     Dosage: 150 MG, UNK
     Route: 048
  12. AFINITOR [Suspect]
     Active Substance: EVEROLIMUS
     Indication: PANCREATIC NEUROENDOCRINE TUMOUR
     Dosage: 5 MG, QD
     Route: 048
     Dates: start: 20120911, end: 20130722
  13. ALFAROL [Concomitant]
     Active Substance: ALFACALCIDOL
     Indication: PRODUCT USED FOR UNKNOWN INDICATION
     Dosage: 0.5 UG, UNK
     Route: 048
  14. DEPAS [Concomitant]
     Active Substance: ETIZOLAM
     Indication: PANCREATIC NEUROENDOCRINE TUMOUR
     Dosage: 0.5 MG, UNK
     Route: 048

REACTIONS (19)
  - Pneumonia [Recovered/Resolved]
  - Spinal fracture [Unknown]
  - Pneumonitis [Unknown]
  - Urinary tract infection [Unknown]
  - Pneumonia pseudomonal [Unknown]
  - Hepatic cyst [Unknown]
  - Performance status decreased [Unknown]
  - Pulmonary mass [Unknown]
  - Lymphocyte percentage decreased [Unknown]
  - Venous stenosis [Unknown]
  - Osteosclerosis [Unknown]
  - Osteolysis [Unknown]
  - Emphysema [Unknown]
  - Sepsis [Unknown]
  - Urinary tract infection [Recovered/Resolved]
  - Pyrexia [Unknown]
  - Calculus bladder [Unknown]
  - Eosinophil percentage increased [Unknown]
  - White blood cell count decreased [Unknown]

NARRATIVE: CASE EVENT DATE: 20120928
